FAERS Safety Report 23675787 (Version 2)
Quarter: 2024Q1

REPORT INFORMATION
  Report Type: Report from Study
  Country: IL (occurrence: IL)
  Receive Date: 20240327
  Receipt Date: 20240328
  Transmission Date: 20240409
  Serious: Yes (Hospitalization, Other)
  Sender: FDA-Public Use
  Company Number: IL-ABBVIE-5692831

PATIENT
  Sex: Male

DRUGS (2)
  1. CARBIDOPA\LEVODOPA [Suspect]
     Active Substance: CARBIDOPA\LEVODOPA
     Indication: Parkinson^s disease
     Route: 050
     Dates: start: 20220117
  2. CARBIDOPA\LEVODOPA [Suspect]
     Active Substance: CARBIDOPA\LEVODOPA
     Dosage: MORNING DOSE 7.0ML, CONTINUOUS DOSE 3.3ML/HOUR, EXTRA DOSE 2.5ML
     Route: 050

REACTIONS (6)
  - Duodenal ulcer haemorrhage [Unknown]
  - Haematochezia [Unknown]
  - Device dislocation [Unknown]
  - Incorrect route of product administration [Unknown]
  - Device issue [Recovered/Resolved]
  - Device kink [Unknown]
